FAERS Safety Report 4451547-3 (Version None)
Quarter: 2004Q3

REPORT INFORMATION
  Report Type: 
  Country: None (occurrence: None)
  Receive Date: 20040915
  Receipt Date: 20040908
  Transmission Date: 20050211
  Serious: No
  Sender: FDA-Public Use
  Company Number: 2004231035US

PATIENT
  Age: 68 Year
  Sex: Male
  Weight: 93 kg

DRUGS (2)
  1. BEXTRA [Suspect]
     Indication: FIBROMYALGIA
     Dosage: 20 MG, QD
     Dates: start: 20040101
  2. NEXIUM [Concomitant]

REACTIONS (2)
  - ARTHRITIS [None]
  - JOINT EFFUSION [None]
